FAERS Safety Report 23196057 (Version 6)
Quarter: 2024Q2

REPORT INFORMATION
  Report Type: Report from Study
  Country: US (occurrence: US)
  Receive Date: 20231117
  Receipt Date: 20240522
  Transmission Date: 20240716
  Serious: Yes (Other)
  Sender: FDA-Public Use
  Company Number: US-002147023-NVSC2023US245472

PATIENT
  Sex: Female

DRUGS (3)
  1. PIQRAY [Suspect]
     Active Substance: ALPELISIB
     Indication: Breast cancer
     Dosage: 200 MG, QD
     Route: 048
  2. PIQRAY [Suspect]
     Active Substance: ALPELISIB
     Dosage: 250 MG (DOSE INCREASED)
     Route: 048
     Dates: start: 202112
  3. PIQRAY [Suspect]
     Active Substance: ALPELISIB
     Dosage: 300 MG, QD ( APPROX1 1/2 WEEKS.)
     Route: 048

REACTIONS (11)
  - Appendicitis [Unknown]
  - Bronchitis [Recovered/Resolved]
  - Anxiety [Recovered/Resolved with Sequelae]
  - Abdominal pain lower [Recovering/Resolving]
  - Tumour marker increased [Unknown]
  - Hepatic mass [Unknown]
  - Hyperglycaemia [Unknown]
  - Renal neoplasm [Unknown]
  - Diarrhoea [Unknown]
  - Product prescribing error [Unknown]
  - Product availability issue [Unknown]
